FAERS Safety Report 20059884 (Version 1)
Quarter: 2021Q4

REPORT INFORMATION
  Report Type: Report from Study
  Country: US (occurrence: US)
  Receive Date: 20211111
  Receipt Date: 20211111
  Transmission Date: 20220303
  Serious: No
  Sender: FDA-Public Use
  Company Number: US-AURINIA PHARMACEUTICALS INC.-AUR-000427

PATIENT
  Age: 22 Year
  Sex: Female

DRUGS (3)
  1. LUPKYNIS [Suspect]
     Active Substance: VOCLOSPORIN
     Indication: Lupus nephritis
     Dosage: 23.7 MILLIGRAM, BID
     Route: 048
     Dates: start: 20210809
  2. LUPKYNIS [Suspect]
     Active Substance: VOCLOSPORIN
     Dosage: 39.5 MILLIGRAM, QD (23.7MG QAM AND 15.8MG QPM)
     Route: 048
     Dates: end: 20210920
  3. LUPKYNIS [Suspect]
     Active Substance: VOCLOSPORIN
     Dosage: 39.5 MILLIGRAM, QD (23.7MG QAM AND 15.8MG QPM)
     Route: 048
     Dates: start: 20210929

REACTIONS (2)
  - Dizziness [Recovered/Resolved]
  - Urinary tract infection [Not Recovered/Not Resolved]

NARRATIVE: CASE EVENT DATE: 20210809
